FAERS Safety Report 10387158 (Version 1)
Quarter: 2014Q1

REPORT INFORMATION
  Report Type: Spontaneous
  Country: US (occurrence: None)
  Receive Date: 20140306
  Receipt Date: 20140306
  Transmission Date: 20141002
  Serious: Yes (Hospitalization)
  Sender: FDA-Public Use
  Company Number: 163-21880-13043532

PATIENT
  Age: 81 Year
  Sex: Female

DRUGS (2)
  1. REVLIMID (LENALIDOMIDE) (10 MILLIGRAM, CAPSULES) [Suspect]
     Indication: PLASMA CELL MYELOMA
     Dosage: 21 IN 21 D
     Route: 048
     Dates: start: 20110825
  2. GLUTAMINE (LEVOGLUTAMIDE) [Concomitant]

REACTIONS (3)
  - Compression fracture [None]
  - Neuropathy peripheral [None]
  - Pain in extremity [None]
